FAERS Safety Report 14016704 (Version 1)
Quarter: 2017Q3

REPORT INFORMATION
  Report Type: Spontaneous
  Country: KR (occurrence: KR)
  Receive Date: 20170927
  Receipt Date: 20170927
  Transmission Date: 20171128
  Serious: Yes (Death, Hospitalization, Other)
  Sender: FDA-Public Use
  Company Number: KR-SA-2017SA176905

PATIENT

DRUGS (3)
  1. ASPIRIN. [Suspect]
     Active Substance: ASPIRIN
     Indication: THROMBOSIS PROPHYLAXIS
     Route: 065
  2. PLAVIX [Suspect]
     Active Substance: CLOPIDOGREL BISULFATE
     Indication: THROMBOSIS PROPHYLAXIS
     Route: 048
  3. NITROGLYCERINE [Suspect]
     Active Substance: NITROGLYCERIN
     Route: 042

REACTIONS (11)
  - Respiratory failure [Fatal]
  - Coronary artery stenosis [Unknown]
  - Hypoaesthesia [Unknown]
  - Acute myocardial infarction [Fatal]
  - Obstructive airways disorder [Fatal]
  - Hypoxia [Fatal]
  - Cardiac arrest [Fatal]
  - Apnoea [Fatal]
  - Localised oedema [Fatal]
  - Arteriosclerosis coronary artery [Unknown]
  - Brain injury [Fatal]
